FAERS Safety Report 9467809 (Version 2)
Quarter: 2013Q3

REPORT INFORMATION
  Report Type: Report from Study
  Country: DE (occurrence: DE)
  Receive Date: 20130821
  Receipt Date: 20130902
  Transmission Date: 20140515
  Serious: Yes (Hospitalization)
  Sender: FDA-Public Use
  Company Number: DE-AMGEN-DEUNI2013057764

PATIENT
  Age: 65 Year
  Sex: Female

DRUGS (4)
  1. PANITUMUMAB [Suspect]
     Indication: COLORECTAL CANCER
     Dosage: 6 MG, Q2WK
     Route: 042
     Dates: start: 20130502
  2. OXALIPLATIN [Suspect]
     Indication: COLON CANCER
     Dosage: 100 MG/M2, Q2WK
     Route: 065
     Dates: start: 20130430
  3. FOLINIC ACID [Suspect]
     Indication: COLON CANCER
     Dosage: 400 MG/M2, Q2WK
     Route: 065
     Dates: start: 20130430
  4. 5-FU [Suspect]
     Indication: COLON CANCER
     Dosage: UNK UNK, Q2WK
     Route: 065
     Dates: start: 20130430

REACTIONS (1)
  - Enteritis [Recovered/Resolved]
